FAERS Safety Report 9232771 (Version 1)
Quarter: 2013Q2

REPORT INFORMATION
  Report Type: Spontaneous
  Country: US (occurrence: US)
  Receive Date: 20130416
  Receipt Date: 20130416
  Transmission Date: 20140414
  Serious: No
  Sender: FDA-Public Use
  Company Number: US-JNJFOC-20130402396

PATIENT
  Sex: Male
  Weight: 54.43 kg

DRUGS (6)
  1. DURAGESIC [Suspect]
     Indication: BACK DISORDER
     Route: 062
  2. THIAZIDE [Concomitant]
     Route: 065
  3. VITAMIN B 12 [Concomitant]
     Route: 065
  4. LEVOTHYROXINE [Concomitant]
     Indication: THYROID DISORDER
     Route: 065
  5. KRISTALOSE [Concomitant]
     Route: 065
  6. NORCO [Concomitant]
     Route: 065

REACTIONS (3)
  - Product quality issue [Unknown]
  - Wrong technique in drug usage process [Unknown]
  - Wrong technique in drug usage process [Unknown]
